FAERS Safety Report 22044465 (Version 18)
Quarter: 2024Q3

REPORT INFORMATION
  Report Type: Spontaneous
  Country: GB (occurrence: GB)
  Receive Date: 20230228
  Receipt Date: 20240827
  Transmission Date: 20241017
  Serious: Yes (Hospitalization, Disabling, Other)
  Sender: OTSUKA
  Company Number: GB-MHRA-MED-202302181721584740-KVQSW

PATIENT
  Age: 37 Year
  Sex: Male

DRUGS (18)
  1. ABILIFY MAINTENA [Suspect]
     Active Substance: ARIPIPRAZOLE
     Indication: Adverse drug reaction
     Dosage: 400 MG (VERY VERY HIGH- AT LEAST 400 MG, FOR YEARS)
     Route: 065
     Dates: start: 20090101
  2. ABILIFY MAINTENA [Suspect]
     Active Substance: ARIPIPRAZOLE
     Dosage: UNK (DOSE INCREASED)
     Route: 065
  3. ARIPIPRAZOLE [Suspect]
     Active Substance: ARIPIPRAZOLE
     Indication: Product used for unknown indication
     Dosage: UNK (OCCLUSIVE DRESSING TECHNIQUE)
     Route: 065
  4. ARIPIPRAZOLE [Suspect]
     Active Substance: ARIPIPRAZOLE
     Dosage: 400 MG (VERY VERY HIGH- AT LEAST 400 MG, FOR YEARS)
     Route: 065
     Dates: start: 20090101
  5. ARIPIPRAZOLE [Suspect]
     Active Substance: ARIPIPRAZOLE
     Indication: Product used for unknown indication
     Dosage: 400 MG (AT LEAST 400 MG)
     Route: 065
  6. ARIPIPRAZOLE [Suspect]
     Active Substance: ARIPIPRAZOLE
     Dosage: AT LEAST 400 MG
     Route: 065
  7. ARIPIPRAZOLE [Suspect]
     Active Substance: ARIPIPRAZOLE
     Dosage: AT LEAST 400 MG
     Route: 065
  8. ARIPIPRAZOLE [Suspect]
     Active Substance: ARIPIPRAZOLE
     Dosage: UNK (DOSE INCREASED)
     Route: 065
  9. ARIPIPRAZOLE [Suspect]
     Active Substance: ARIPIPRAZOLE
     Dosage: 400 MILLIGRAM (AT LEAST 400 MG)
     Route: 065
  10. ARIPIPRAZOLE [Suspect]
     Active Substance: ARIPIPRAZOLE
     Dosage: UNK (SUSPENSION FOR INJECTION (OCCLUSIVE DRESSING TECHNIQUE))
     Route: 065
  11. ARIPIPRAZOLE [Suspect]
     Active Substance: ARIPIPRAZOLE
     Dosage: 400 MG
     Route: 065
     Dates: start: 20090101
  12. ARIPIPRAZOLE [Suspect]
     Active Substance: ARIPIPRAZOLE
     Dosage: 400 MG (VERY VERY HIGH- AT LEAST 400 MG, FOR YEARS)
     Route: 065
  13. CLOZAPINE [Suspect]
     Active Substance: CLOZAPINE
     Indication: Product used for unknown indication
     Dosage: UNK
     Route: 065
  14. CLOZAPINE [Suspect]
     Active Substance: CLOZAPINE
     Dosage: UNK (OCCLUSIVE DRESSING TECHNIQUE)
     Route: 065
  15. CLOZAPINE [Suspect]
     Active Substance: CLOZAPINE
     Dosage: UNK (DOSE INCREASED)
     Route: 065
  16. OLANZAPINE [Suspect]
     Active Substance: OLANZAPINE
     Indication: Adverse drug reaction
     Dosage: 120 MILLIGRAM (VERY VERY HIGH)
     Route: 065
     Dates: start: 20140301
  17. OLANZAPINE [Suspect]
     Active Substance: OLANZAPINE
     Dosage: UNK (OCCLUSIVE DRESSING TECHNIQUE)
     Route: 046
  18. OLANZAPINE [Suspect]
     Active Substance: OLANZAPINE
     Dosage: UNK (OCCLUSIVE DRESSING TECHNIQUE)
     Route: 065

REACTIONS (23)
  - Loss of personal independence in daily activities [Unknown]
  - Personality change [Unknown]
  - Irritable bowel syndrome [Unknown]
  - Skin irritation [Unknown]
  - Scratch [Unknown]
  - Visual impairment [Unknown]
  - Discomfort [Not Recovered/Not Resolved]
  - Tension [Unknown]
  - Pollakiuria [Unknown]
  - Irritability [Unknown]
  - Lethargy [Unknown]
  - Pain [Unknown]
  - Musculoskeletal stiffness [Unknown]
  - Pruritus [Unknown]
  - Injection site pain [Unknown]
  - Akathisia [Unknown]
  - Somnolence [Unknown]
  - Anxiety [Unknown]
  - Weight increased [Unknown]
  - Diabetes mellitus [Unknown]
  - Diarrhoea [Not Recovered/Not Resolved]
  - Product prescribing error [Unknown]
  - Product use in unapproved indication [Unknown]

NARRATIVE: CASE EVENT DATE: 20090101
